FAERS Safety Report 9455687 (Version 1)
Quarter: 2013Q3

REPORT INFORMATION
  Report Type: Spontaneous
  Country: US (occurrence: US)
  Receive Date: 20130813
  Receipt Date: 20130813
  Transmission Date: 20140515
  Serious: Yes (Other)
  Sender: FDA-Public Use
  Company Number: US-PFIZER INC-2013230492

PATIENT
  Age: 57 Year
  Sex: Female
  Weight: 61.22 kg

DRUGS (1)
  1. MENEST [Suspect]
     Indication: MENOPAUSE
     Dosage: 0.625 MG, 1X/DAY
     Dates: start: 200508

REACTIONS (1)
  - Coeliac disease [Not Recovered/Not Resolved]
